FAERS Safety Report 14473704 (Version 2)
Quarter: 2018Q1

REPORT INFORMATION
  Report Type: Spontaneous
  Country: US (occurrence: US)
  Receive Date: 20180201
  Receipt Date: 20180329
  Transmission Date: 20180509
  Serious: No
  Sender: FDA-Public Use
  Company Number: US-PFIZER INC-2018034531

PATIENT
  Age: 79 Year
  Sex: Female

DRUGS (2)
  1. PREMARIN [Suspect]
     Active Substance: ESTROGENS, CONJUGATED
     Indication: HYSTERECTOMY
     Dosage: 0.625 MG, 1X/DAY
     Dates: start: 1975
  2. PREMARIN [Suspect]
     Active Substance: ESTROGENS, CONJUGATED
     Dosage: 0.625 MG, 2X/WEEK (TWICE A WEEK INSTEAD OF DAILY)

REACTIONS (4)
  - Insomnia [Recovered/Resolved]
  - Nervousness [Recovered/Resolved]
  - Agitation [Recovered/Resolved]
  - Intentional product use issue [Recovered/Resolved]
